FAERS Safety Report 5621023-0 (Version None)
Quarter: 2008Q1

REPORT INFORMATION
  Report Type: 
  Country: None (occurrence: None)
  Receive Date: 20080208
  Receipt Date: 20080129
  Transmission Date: 20080703
  Serious: Yes (Other)
  Sender: FDA-Public Use
  Company Number: GB-PFIZER INC-2008009742

PATIENT
  Sex: Female

DRUGS (4)
  1. ZYVOX [Suspect]
     Indication: ENTEROCOCCAL INFECTION
     Route: 048
  2. ASPIRIN [Concomitant]
  3. DRUG, UNSPECIFIED [Concomitant]
  4. TRAMADOL HCL [Concomitant]

REACTIONS (1)
  - CONFUSIONAL STATE [None]
